FAERS Safety Report 20691127 (Version 1)
Quarter: 2022Q2

REPORT INFORMATION
  Report Type: Spontaneous
  Country: US (occurrence: None)
  Receive Date: 20220406
  Receipt Date: 20220406
  Transmission Date: 20220720
  Serious: Yes (Hospitalization)
  Sender: FDA-Public Use
  Company Number: None

PATIENT
  Sex: Male

DRUGS (2)
  1. GLEOSTINE [Suspect]
     Active Substance: LOMUSTINE
     Indication: Brain neoplasm malignant
     Dosage: 160MG  EVERY 6 WEEKS ORAL?
     Route: 048
     Dates: start: 202202
  2. TEMOZOLOMIDE [Suspect]
     Active Substance: TEMOZOLOMIDE
     Indication: Brain neoplasm malignant
     Dosage: 280MG DAILY BY MOUTH
     Route: 048
     Dates: start: 202201

REACTIONS (3)
  - Platelet count decreased [None]
  - White blood cell count decreased [None]
  - Weight decreased [None]
